FAERS Safety Report 6804600-0 (Version None)
Quarter: 2010Q2

REPORT INFORMATION
  Report Type: 
  Country: None (occurrence: None)
  Receive Date: 20100628
  Receipt Date: 20070418
  Transmission Date: 20101027
  Serious: No
  Sender: FDA-Public Use
  Company Number: US-PFIZER INC-2007032239

PATIENT
  Sex: Female
  Weight: 65.77 kg

DRUGS (4)
  1. GEODON [Suspect]
     Indication: OBSESSIVE-COMPULSIVE DISORDER
     Dates: start: 20061201
  2. GEODON [Suspect]
     Indication: DISSOCIATIVE IDENTITY DISORDER
  3. SERTRALINE HCL [Concomitant]
  4. RISPERIDONE [Concomitant]

REACTIONS (3)
  - INITIAL INSOMNIA [None]
  - INSOMNIA [None]
  - POOR QUALITY SLEEP [None]
